FAERS Safety Report 7906183-0 (Version None)
Quarter: 2011Q4

REPORT INFORMATION
  Report Type: 
  Country: None (occurrence: None)
  Receive Date: 20111109
  Receipt Date: 20111109
  Transmission Date: 20120403
  Serious: Yes (Life-Threatening)
  Sender: FDA-Public Use
  Company Number: None

PATIENT
  Age: 62 Year
  Sex: Female

DRUGS (2)
  1. TERBINAFINE HCL [Suspect]
     Dosage: 250MG FOR 90 DAYS
     Dates: start: 20110407
  2. CIPROFLOXACIN [Suspect]
     Dosage: 250MG EVER 12 HRS
     Dates: start: 20111018

REACTIONS (6)
  - PRURITUS [None]
  - ABASIA [None]
  - DYSPNOEA [None]
  - SWOLLEN TONGUE [None]
  - PAIN IN EXTREMITY [None]
  - PHARYNGEAL OEDEMA [None]
